FAERS Safety Report 9452312 (Version 1)
Quarter: 2013Q3

REPORT INFORMATION
  Report Type: Spontaneous
  Country: US (occurrence: None)
  Receive Date: 20130808
  Receipt Date: 20130808
  Transmission Date: 20140515
  Serious: Yes (Other)
  Sender: FDA-Public Use
  Company Number: None

PATIENT
  Age: 26 Year
  Sex: Male
  Weight: 165.56 kg

DRUGS (1)
  1. ALPRAZOLAM [Suspect]
     Indication: ANXIETY
     Dosage: 1 MG TWICE DAILY TAKEN BY MOUTH
     Route: 048
     Dates: start: 20130415, end: 20130525

REACTIONS (10)
  - Depression [None]
  - Constipation [None]
  - Insomnia [None]
  - Paraesthesia [None]
  - Anxiety [None]
  - Weight decreased [None]
  - Ear disorder [None]
  - Confusional state [None]
  - Tinnitus [None]
  - Hearing impaired [None]
